FAERS Safety Report 6403179-5 (Version None)
Quarter: 2009Q4

REPORT INFORMATION
  Report Type: 
  Country: None (occurrence: None)
  Receive Date: 20091016
  Receipt Date: 20091006
  Transmission Date: 20100525
  Serious: Yes (Other)
  Sender: FDA-Public Use
  Company Number: US-JNJFOC-20091002034

PATIENT
  Sex: Male
  Weight: 78.47 kg

DRUGS (12)
  1. REMICADE [Suspect]
     Route: 042
     Dates: start: 20050320, end: 20090123
  2. REMICADE [Suspect]
     Dosage: DOSAGE INCREASED
     Route: 042
     Dates: start: 20050320, end: 20090123
  3. REMICADE [Suspect]
     Indication: COLITIS ULCERATIVE
     Route: 042
     Dates: start: 20050320, end: 20090123
  4. HUMIRA [Suspect]
     Indication: CROHN'S DISEASE
  5. IMURAN [Suspect]
     Indication: COLITIS ULCERATIVE
     Dates: start: 20010601, end: 20090921
  6. PREDNISONE [Concomitant]
     Indication: COLITIS ULCERATIVE
  7. BALSALAZIDE DISODIUM [Concomitant]
     Indication: COLITIS ULCERATIVE
  8. ESCITALOPRAM OXALATE [Concomitant]
  9. PROMETHAZINE [Concomitant]
  10. VIGRAN [Concomitant]
  11. CALCIUM CITRATE [Concomitant]
  12. ERGOCALCIFEROL [Concomitant]

REACTIONS (2)
  - MALIGNANT MELANOMA IN SITU [None]
  - SKIN LESION [None]
